FAERS Safety Report 23767472 (Version 2)
Quarter: 2024Q2

REPORT INFORMATION
  Report Type: Report from Study
  Country: US (occurrence: US)
  Receive Date: 20240422
  Receipt Date: 20240516
  Transmission Date: 20240716
  Serious: No
  Sender: FDA-Public Use
  Company Number: US-ACADIA PHARMACEUTICALS INC.-ACA-2024-PIM-001581

PATIENT
  Age: 85 Year
  Sex: Male

DRUGS (5)
  1. NUPLAZID [Suspect]
     Active Substance: PIMAVANSERIN TARTRATE
     Indication: Parkinson^s disease psychosis
     Dosage: 34 MILLIGRAM, QD
     Route: 048
     Dates: start: 20240321
  2. ELIQUIS [Concomitant]
     Active Substance: APIXABAN
  3. MIDODRINE [Concomitant]
     Active Substance: MIDODRINE
  4. TOPROL XL [Concomitant]
     Active Substance: METOPROLOL SUCCINATE
  5. SINAMET [Concomitant]

REACTIONS (3)
  - Adverse drug reaction [Recovered/Resolved]
  - Parkinsonism [Unknown]
  - Dementia [Unknown]

NARRATIVE: CASE EVENT DATE: 20240321
